FAERS Safety Report 19691119 (Version 2)
Quarter: 2021Q4

REPORT INFORMATION
  Report Type: Spontaneous
  Country: None (occurrence: US)
  Receive Date: 20210812
  Receipt Date: 20211117
  Transmission Date: 20220303
  Serious: Yes (Other)
  Sender: FDA-Public Use
  Company Number: US-EDGEWELL PERSONAL CARE, LLC-2114935

PATIENT
  Age: 66 Year
  Sex: Female

DRUGS (1)
  1. BANANA BOAT ULTRA SPORT SUNSCREEN BROAD SPECTRUM SPF 50 [Suspect]
     Active Substance: AVOBENZONE\HOMOSALATE\OCTISALATE\OCTOCRYLENE
     Indication: Prophylaxis against solar radiation
     Route: 061
     Dates: start: 20210724, end: 20210724

REACTIONS (6)
  - Erythema [Recovering/Resolving]
  - Choking sensation [Recovering/Resolving]
  - Blister [Recovering/Resolving]
  - Hypersensitivity [Recovering/Resolving]
  - Dermatitis contact [Recovering/Resolving]
  - Pruritus [Recovering/Resolving]

NARRATIVE: CASE EVENT DATE: 20210724
